FAERS Safety Report 9832023 (Version 2)
Quarter: 2014Q1

REPORT INFORMATION
  Report Type: Report from Study
  Country: US (occurrence: US)
  Receive Date: 20140121
  Receipt Date: 20140121
  Transmission Date: 20141002
  Serious: Yes (Hospitalization)
  Sender: FDA-Public Use
  Company Number: PHEH2014US000690

PATIENT
  Age: 33 Year
  Sex: Male

DRUGS (8)
  1. AFINITOR [Suspect]
     Indication: ANGIOMYOLIPOMA
     Dosage: 10 MG, DAILY
     Route: 048
     Dates: start: 20130327
  2. DEPAKOTE [Concomitant]
     Dosage: UNK UKN, UNK
  3. CELEXA [Concomitant]
     Dosage: UNK UKN, UNK
  4. SODIUM BICARBONATE [Concomitant]
     Dosage: UNK UKN, UNK
  5. NEXIUM//ESOMEPRAZOLE MAGNESIUM [Concomitant]
     Dosage: UNK UKN, UNK
  6. ADVAIR [Concomitant]
     Dosage: UNK UKN, UNK
  7. RELPAX [Concomitant]
     Dosage: UNK UKN, UNK
  8. PHENOBARBITAL [Concomitant]
     Dosage: UNK UKN, UNK

REACTIONS (9)
  - Loss of consciousness [Unknown]
  - Aphonia [Not Recovered/Not Resolved]
  - Feeling abnormal [Not Recovered/Not Resolved]
  - Oropharyngeal pain [Not Recovered/Not Resolved]
  - Malaise [Not Recovered/Not Resolved]
  - Pyrexia [Not Recovered/Not Resolved]
  - Nasopharyngitis [Not Recovered/Not Resolved]
  - Lower respiratory tract infection [Not Recovered/Not Resolved]
  - Cough [Unknown]
